FAERS Safety Report 5008037-9 (Version None)
Quarter: 2006Q2

REPORT INFORMATION
  Report Type: 
  Country: None (occurrence: None)
  Receive Date: 20060517
  Receipt Date: 20060515
  Transmission Date: 20061013
  Serious: Yes (Hospitalization)
  Sender: FDA-Public Use
  Company Number: 220054

PATIENT
  Age: 62 Year
  Sex: Female
  Weight: 67 kg

DRUGS (8)
  1. BEVACIZUMAB OR PLACEBO                  (BEVACIZUMAB) [Suspect]
     Indication: METASTATIC RENAL CELL CARCINOMA
     Dosage: Q2W INTRAVENOUS
     Route: 042
     Dates: start: 20050616, end: 20050928
  2. INTERFERON ALFA-2A           (INTERFERON ALFA-2A) [Suspect]
     Indication: METASTATIC RENAL CELL CARCINOMA
     Dosage: 9 MIU, 3/WEEK , SUBCUTANEOUS
     Route: 058
     Dates: start: 20050616, end: 20050928
  3. DEXAMETHASONE TAB [Concomitant]
  4. ACETAMINOPHEN [Concomitant]
  5. DOMPERIDONE [Concomitant]
  6. DELORAZEPAM [Concomitant]
  7. OMEPRAZOLE [Concomitant]
  8. VERAPAMIL [Concomitant]

REACTIONS (3)
  - LEUKOENCEPHALOPATHY [None]
  - PERFORMANCE STATUS DECREASED [None]
  - PSYCHOMOTOR RETARDATION [None]
